FAERS Safety Report 20495614 (Version 6)
Quarter: 2022Q2

REPORT INFORMATION
  Report Type: Spontaneous
  Country: CN (occurrence: CN)
  Receive Date: 20220221
  Receipt Date: 20220422
  Transmission Date: 20220720
  Serious: Yes (Death, Life-Threatening, Other)
  Sender: FDA-Public Use
  Company Number: CN-TAKEDA-2022TUS011449

PATIENT
  Age: 74 Year
  Sex: Male

DRUGS (1)
  1. NINLARO [Suspect]
     Active Substance: IXAZOMIB CITRATE
     Indication: Product used for unknown indication
     Dosage: 3 MILLIGRAM
     Route: 065

REACTIONS (7)
  - Septic shock [Fatal]
  - Coma [Unknown]
  - Diarrhoea [Unknown]
  - Dehydration [Unknown]
  - White blood cell count decreased [Unknown]
  - Overdose [Unknown]
  - Product administration error [Unknown]

NARRATIVE: CASE EVENT DATE: 20220215
